FAERS Safety Report 16038233 (Version 16)
Quarter: 2023Q1

REPORT INFORMATION
  Report Type: Spontaneous
  Country: US (occurrence: US)
  Receive Date: 20190305
  Receipt Date: 20230111
  Transmission Date: 20230417
  Serious: Yes (Hospitalization)
  Sender: FDA-Public Use
  Company Number: US-VIFOR (INTERNATIONAL) INC.-VIT-2019-01801

PATIENT
  Age: 81 Year
  Sex: Male
  Weight: 108.05 kg

DRUGS (14)
  1. VELTASSA [Suspect]
     Active Substance: PATIROMER
     Indication: Hyperkalaemia
     Route: 048
     Dates: start: 20190212
  2. VELTASSA [Suspect]
     Active Substance: PATIROMER
     Indication: Renal disorder
     Route: 048
     Dates: start: 20181219
  3. VELTASSA [Suspect]
     Active Substance: PATIROMER
     Dosage: START DATE OF TREATMENT: A YEAR
     Route: 048
     Dates: start: 2021
  4. AMLODIPINE BESYLATE [Concomitant]
     Active Substance: AMLODIPINE BESYLATE
  5. ASPIRIN [Concomitant]
     Active Substance: ASPIRIN
  6. ATORVASTATIN CALCIUM [Concomitant]
     Active Substance: ATORVASTATIN CALCIUM
  7. CARVEDILOL [Concomitant]
     Active Substance: CARVEDILOL
  8. COENZYME Q10 [Concomitant]
     Active Substance: DIETARY SUPPLEMENT\UBIDECARENONE
  9. CONTOUR NEXT ONE [Concomitant]
  10. FUROSEMIDE [Concomitant]
     Active Substance: FUROSEMIDE
  11. KETOCONAZOLE [Concomitant]
     Active Substance: KETOCONAZOLE
  12. LISINOPRIL [Concomitant]
     Active Substance: LISINOPRIL
  13. METANX [Concomitant]
     Active Substance: LEVOMEFOLATE CALCIUM\METHYLCOBALAMIN\PYRIDOXAL PHOSPHATE ANHYDROUS
  14. METOLAZONE [Concomitant]
     Active Substance: METOLAZONE

REACTIONS (20)
  - Pneumonia [Unknown]
  - Feeling abnormal [Unknown]
  - Influenza [Unknown]
  - Product colour issue [Unknown]
  - Off label use [Unknown]
  - Decreased appetite [Not Recovered/Not Resolved]
  - Pain [Not Recovered/Not Resolved]
  - Dry skin [Not Recovered/Not Resolved]
  - Pruritus [Not Recovered/Not Resolved]
  - Gout [Unknown]
  - Dyschezia [Not Recovered/Not Resolved]
  - Depression [Unknown]
  - Stress [Unknown]
  - Memory impairment [Unknown]
  - Fatigue [Unknown]
  - Weight decreased [Recovered/Resolved]
  - Ageusia [Recovered/Resolved]
  - Asthenia [Recovering/Resolving]
  - Diarrhoea [Unknown]
  - Constipation [Unknown]

NARRATIVE: CASE EVENT DATE: 20190225
